FAERS Safety Report 4289755-7 (Version None)
Quarter: 2004Q1

REPORT INFORMATION
  Report Type: 
  Country: None (occurrence: None)
  Receive Date: 20040206
  Receipt Date: 20040127
  Transmission Date: 20041129
  Serious: Yes (Hospitalization)
  Sender: FDA-Public Use
  Company Number: DE-SHR-03-007563

PATIENT
  Age: 40 Year
  Sex: Female

DRUGS (1)
  1. YASMIN [Suspect]
     Indication: BREAST DISCOMFORT
     Dosage: ORAL
     Route: 048
     Dates: start: 20001201, end: 20010101

REACTIONS (3)
  - PANIC ATTACK [None]
  - STRESS SYMPTOMS [None]
  - SUDDEN HEARING LOSS [None]
